FAERS Safety Report 12635365 (Version 3)
Quarter: 2016Q4

REPORT INFORMATION
  Report Type: Report from Study
  Country: CO (occurrence: CO)
  Receive Date: 20160809
  Receipt Date: 20161103
  Transmission Date: 20170207
  Serious: Yes (Hospitalization, Other)
  Sender: FDA-Public Use
  Company Number: CO-JNJFOC-20160804575

PATIENT
  Age: 89 Year
  Sex: Male
  Weight: 50 kg

DRUGS (2)
  1. STELARA [Suspect]
     Active Substance: USTEKINUMAB
     Indication: PSORIASIS
     Route: 058
     Dates: start: 20160712
  2. STELARA [Suspect]
     Active Substance: USTEKINUMAB
     Indication: PSORIASIS
     Route: 058
     Dates: start: 20151111

REACTIONS (9)
  - Pulmonary congestion [Recovering/Resolving]
  - Pyrexia [Recovering/Resolving]
  - Cardiomegaly [Recovering/Resolving]
  - Pneumoconiosis [Recovering/Resolving]
  - Pleural effusion [Recovering/Resolving]
  - Urine analysis abnormal [Recovering/Resolving]
  - Muscle atrophy [Unknown]
  - Oedema peripheral [Unknown]
  - Urinary tract infection [Recovered/Resolved]

NARRATIVE: CASE EVENT DATE: 2016
